FAERS Safety Report 6096369-5 (Version None)
Quarter: 2009Q1

REPORT INFORMATION
  Report Type: 
  Country: None (occurrence: None)
  Receive Date: 20090227
  Receipt Date: 20081121
  Transmission Date: 20090719
  Serious: Yes (Life-Threatening, Hospitalization, Disabling, Other)
  Sender: FDA-Public Use
  Company Number: A0758160A

PATIENT
  Sex: Male

DRUGS (1)
  1. LAMOTRIGINE [Suspect]
     Dosage: 150MG UNKNOWN
     Route: 048
     Dates: end: 20081101

REACTIONS (2)
  - DRUG INEFFECTIVE [None]
  - RASH [None]
